FAERS Safety Report 7167161-5 (Version None)
Quarter: 2010Q4

REPORT INFORMATION
  Report Type: 
  Country: None (occurrence: None)
  Receive Date: 20101213
  Receipt Date: 20101213
  Transmission Date: 20110411
  Serious: No
  Sender: FDA-Public Use
  Company Number: None

PATIENT
  Sex: Female
  Weight: 68.9467 kg

DRUGS (1)
  1. MIMVEY 1MG/0.5 MG TEVA PHARMACEUTICALS [Suspect]
     Indication: HOT FLUSH
     Dosage: 1MG/0.5MG 1 TABLET PER DAY PO
     Route: 048
     Dates: start: 20101011, end: 20101017

REACTIONS (3)
  - METRORRHAGIA [None]
  - PRODUCT QUALITY ISSUE [None]
  - PRODUCT SUBSTITUTION ISSUE [None]
